FAERS Safety Report 16276547 (Version 1)
Quarter: 2019Q2

REPORT INFORMATION
  Report Type: Spontaneous
  Country: US (occurrence: US)
  Receive Date: 20190401
  Receipt Date: 20190401
  Transmission Date: 20190711
  Serious: No
  Sender: FDA-Public Use
  Company Number: None

PATIENT
  Age: 44 Year
  Sex: Female

DRUGS (1)
  1. MYCOPHENOLATE MOFETIL  500MG TABLET [Suspect]
     Active Substance: MYCOPHENOLATE MOFETIL
     Indication: SCLERODERMA
     Route: 048
     Dates: start: 201903

REACTIONS (4)
  - Off label use [None]
  - Pollakiuria [None]
  - Fluid retention [None]
  - Therapy cessation [None]

NARRATIVE: CASE EVENT DATE: 20190401
